FAERS Safety Report 11199448 (Version 2)
Quarter: 2015Q3

REPORT INFORMATION
  Report Type: Report from Study
  Country: RS (occurrence: RS)
  Receive Date: 20150618
  Receipt Date: 20150709
  Transmission Date: 20151125
  Serious: Yes (Hospitalization, Other)
  Sender: FDA-Public Use
  Company Number: RS-ACTELION-A-CH2014-94526

PATIENT
  Age: 7 Year
  Sex: Female
  Weight: 19 kg

DRUGS (6)
  1. SPIRONOLACTON [Concomitant]
     Active Substance: SPIRONOLACTONE
     Indication: RIGHT VENTRICULAR FAILURE
     Dosage: UNK
     Dates: start: 20131104, end: 201404
  2. FUROSEMID [Concomitant]
     Active Substance: FUROSEMIDE
     Indication: RIGHT VENTRICULAR FAILURE
     Dosage: UNK
     Dates: start: 20130328, end: 201404
  3. SILDENAFIL. [Concomitant]
     Active Substance: SILDENAFIL
     Indication: PULMONARY ARTERIAL HYPERTENSION
     Dosage: UNK
     Dates: start: 201009, end: 201404
  4. ASPIRIN. [Concomitant]
     Active Substance: ASPIRIN
  5. TRACLEER [Suspect]
     Active Substance: BOSENTAN
     Indication: PULMONARY ARTERIAL HYPERTENSION
     Dosage: 62.5 MG, BID
     Route: 048
     Dates: start: 20111220
  6. DIGOXIN. [Concomitant]
     Active Substance: DIGOXIN
     Indication: RIGHT VENTRICULAR FAILURE
     Dosage: UNK
     Dates: start: 20140325, end: 201404

REACTIONS (5)
  - Lung transplant [Unknown]
  - Pulmonary arterial hypertension [Not Recovered/Not Resolved]
  - Right ventricular failure [Unknown]
  - Condition aggravated [Unknown]
  - Disease progression [Not Recovered/Not Resolved]

NARRATIVE: CASE EVENT DATE: 201403
